FAERS Safety Report 4968686-0 (Version None)
Quarter: 2006Q2

REPORT INFORMATION
  Report Type: 
  Country: None (occurrence: None)
  Receive Date: 20060411
  Receipt Date: 20050404
  Transmission Date: 20061013
  Serious: Yes (Hospitalization, Disabling, Other)
  Sender: FDA-Public Use
  Company Number: PHNU2005DE01509

PATIENT
  Age: 74 Year
  Sex: Female
  Weight: 64 kg

DRUGS (5)
  1. ALDACTONE [Concomitant]
     Dosage: 50 MG, QD
     Route: 065
  2. BELOC ZOK [Concomitant]
     Dosage: 100 MG, QD
     Route: 065
  3. ZOMETA [Suspect]
     Indication: METASTASES TO BONE
     Dosage: UNK, QMO
     Route: 042
     Dates: start: 20030201, end: 20040801
  4. NOLVADEX [Concomitant]
     Indication: BREAST CANCER METASTATIC
     Dosage: 20 MG, QD
     Route: 048
     Dates: start: 20030201
  5. AREDIA [Suspect]
     Indication: METASTASES TO BONE
     Dosage: UNK, QMO
     Dates: start: 20020101, end: 20030101

REACTIONS (11)
  - BIOPSY SITE UNSPECIFIED ABNORMAL [None]
  - BIOPSY SKIN [None]
  - BONE DISORDER [None]
  - DENTAL OPERATION [None]
  - GENERAL ANAESTHESIA [None]
  - IMPAIRED HEALING [None]
  - OSTEITIS [None]
  - OSTEONECROSIS [None]
  - PAIN IN JAW [None]
  - SWELLING [None]
  - TOOTH EXTRACTION [None]
